FAERS Safety Report 6748768-3 (Version None)
Quarter: 2010Q2

REPORT INFORMATION
  Report Type: 
  Country: None (occurrence: None)
  Receive Date: 20100601
  Receipt Date: 20100519
  Transmission Date: 20101027
  Serious: Yes (Other)
  Sender: FDA-Public Use
  Company Number: PHHY2010DE09702

PATIENT
  Sex: Male
  Weight: 167 kg

DRUGS (2)
  1. CERTICAN [Suspect]
     Indication: RENAL TRANSPLANT
     Dosage: 3 MG, DAILY
     Route: 048
     Dates: start: 20090528
  2. FLUVASTATIN [Interacting]
     Dosage: 20 MG, DAILY

REACTIONS (1)
  - BLOOD CREATINE PHOSPHOKINASE INCREASED [None]
